FAERS Safety Report 9249777 (Version 1)
Quarter: 2013Q2

REPORT INFORMATION
  Report Type: Report from Study
  Country: US (occurrence: US)
  Receive Date: 20130423
  Receipt Date: 20130423
  Transmission Date: 20140414
  Serious: Yes (Other)
  Sender: FDA-Public Use
  Company Number: US-ROCHE-1213377

PATIENT
  Sex: Female

DRUGS (3)
  1. HERCEPTIN [Suspect]
     Indication: BREAST CANCER
     Route: 042
     Dates: start: 20121101, end: 20130408
  2. ADRIAMYCIN [Concomitant]
     Indication: BREAST CANCER
     Route: 042
     Dates: start: 20121101, end: 20130101
  3. TAXOL [Concomitant]
     Indication: BREAST CANCER
     Route: 042
     Dates: start: 20121101, end: 20130101

REACTIONS (1)
  - Heart disease congenital [Not Recovered/Not Resolved]
